FAERS Safety Report 20561461 (Version 1)
Quarter: 2022Q1

REPORT INFORMATION
  Report Type: Spontaneous
  Country: DE (occurrence: DE)
  Receive Date: 20220307
  Receipt Date: 20220307
  Transmission Date: 20220424
  Serious: Yes (Hospitalization)
  Sender: FDA-Public Use
  Company Number: DE-NOVARTISPH-NVSC2021DE145765

PATIENT
  Age: 53 Year
  Sex: Male
  Weight: 76 kg

DRUGS (2)
  1. SULFAMETHOXAZOLE\TRIMETHOPRIM [Suspect]
     Active Substance: SULFAMETHOXAZOLE\TRIMETHOPRIM
     Indication: Product used for unknown indication
     Dosage: UNK (800|160 MG, 0-1-0-0, TABLETTEN)
     Route: 048
  2. UMECLIDINIUM BROMIDE\VILANTEROL TRIFENATATE [Concomitant]
     Active Substance: UMECLIDINIUM BROMIDE\VILANTEROL TRIFENATATE
     Indication: Product used for unknown indication
     Dosage: UNK (92|65|22 ?G, 1-0-0-0, INHALATIONSPULVER, ELLIPTA 55 MIKROGRAMM/22 MIKROGRAMM EINZELDOSIERTES PU
     Route: 055

REACTIONS (7)
  - General physical health deterioration [Unknown]
  - Cold sweat [Unknown]
  - Weight decreased [Unknown]
  - Nausea [Unknown]
  - Vomiting [Unknown]
  - Fatigue [Unknown]
  - Abdominal pain [Unknown]
